FAERS Safety Report 8810650 (Version 1)
Quarter: 2012Q4

REPORT INFORMATION
  Report Type: Spontaneous
  Country: US (occurrence: None)
  Receive Date: 20120924
  Receipt Date: 20120924
  Transmission Date: 20130627
  Serious: Yes (Disabling)
  Sender: FDA-Public Use
  Company Number: None

PATIENT
  Age: 72 Year
  Sex: Female
  Weight: 62.14 kg

DRUGS (1)
  1. CIPROFLOXACIN HCL [Suspect]
     Indication: BLADDER INFECTION

REACTIONS (1)
  - Arthralgia [None]
